FAERS Safety Report 11106859 (Version 3)
Quarter: 2015Q2

REPORT INFORMATION
  Report Type: Spontaneous
  Country: US (occurrence: US)
  Receive Date: 20150512
  Receipt Date: 20150526
  Transmission Date: 20150821
  Serious: Yes (Other)
  Sender: FDA-Public Use
  Company Number: US-BAYER-2015-215688

PATIENT
  Age: 37 Year
  Sex: Female
  Weight: 91 kg

DRUGS (2)
  1. MIRALAX [Suspect]
     Active Substance: POLYETHYLENE GLYCOL 3350
     Indication: CONSTIPATION
     Dosage: 1 DF, PRN
     Route: 048
  2. IRON [IRON] [Concomitant]

REACTIONS (3)
  - Maternal exposure during pregnancy [None]
  - Breech presentation [None]
  - Anaemia [None]

NARRATIVE: CASE EVENT DATE: 2014
